FAERS Safety Report 7120396-X (Version None)
Quarter: 2010Q4

REPORT INFORMATION
  Report Type: 
  Country: None (occurrence: None)
  Receive Date: 20101124
  Receipt Date: 20101112
  Transmission Date: 20110411
  Serious: No
  Sender: FDA-Public Use
  Company Number: US-BIOGENIDEC-2010BI003336

PATIENT
  Sex: Female

DRUGS (1)
  1. TYSABRI [Suspect]
     Indication: MULTIPLE SCLEROSIS
     Route: 042
     Dates: start: 20080626

REACTIONS (6)
  - CARDIAC MURMUR [None]
  - FIBROMYALGIA [None]
  - MUSCULOSKELETAL PAIN [None]
  - OVERWEIGHT [None]
  - SLEEP APNOEA SYNDROME [None]
  - SOMNOLENCE [None]
